FAERS Safety Report 12529429 (Version 1)
Quarter: 2016Q3

REPORT INFORMATION
  Report Type: Report from Study
  Country: US (occurrence: US)
  Receive Date: 20160706
  Receipt Date: 20160706
  Transmission Date: 20161109
  Serious: Yes (Hospitalization, Other)
  Sender: FDA-Public Use
  Company Number: US-ROCHE-1337001

PATIENT
  Age: 50 Year
  Sex: Female
  Weight: 92.62 kg

DRUGS (6)
  1. NUTROPIN AQ [Suspect]
     Active Substance: SOMATROPIN
     Route: 058
     Dates: start: 2009
  2. HUMALOG [Concomitant]
     Active Substance: INSULIN LISPRO
     Dosage: 10 UNITS WITH MEALS
     Route: 065
  3. LEVOTHYROXINE. [Concomitant]
     Active Substance: LEVOTHYROXINE
     Route: 065
  4. NUTROPIN AQ [Suspect]
     Active Substance: SOMATROPIN
     Indication: PITUITARY TUMOUR BENIGN
     Route: 058
  5. LANTUS [Concomitant]
     Active Substance: INSULIN GLARGINE
  6. METFORMIN [Concomitant]
     Active Substance: METFORMIN HYDROCHLORIDE
     Route: 065

REACTIONS (24)
  - Nocturia [Unknown]
  - Asthenia [Unknown]
  - High density lipoprotein decreased [Unknown]
  - Blood lactic acid increased [Unknown]
  - Back pain [Unknown]
  - Body temperature fluctuation [Unknown]
  - Incorrect dose administered [Unknown]
  - Malaise [Unknown]
  - Affect lability [Unknown]
  - Anxiety [Unknown]
  - Drug dose omission [Unknown]
  - White blood cell count increased [Unknown]
  - Thirst [Unknown]
  - Palpitations [Unknown]
  - Sleep disorder [Unknown]
  - Hyperglycaemia [Unknown]
  - Night sweats [Unknown]
  - Insulin-like growth factor increased [Unknown]
  - Weight increased [Unknown]
  - Arthralgia [Unknown]
  - Abdominal discomfort [Unknown]
  - Hot flush [Unknown]
  - Social avoidant behaviour [Unknown]
  - Glycosylated haemoglobin increased [Unknown]

NARRATIVE: CASE EVENT DATE: 20120127
